FAERS Safety Report 17486367 (Version 2)
Quarter: 2022Q2

REPORT INFORMATION
  Report Type: Report from Study
  Country: CH (occurrence: CH)
  Receive Date: 20200303
  Receipt Date: 20220404
  Transmission Date: 20220721
  Serious: Yes (Congenital Anomaly, Other)
  Sender: FDA-Public Use
  Company Number: CH-SA-2020SA050176

PATIENT

DRUGS (3)
  1. IRBESARTAN [Suspect]
     Active Substance: IRBESARTAN
     Indication: Maternal exposure during pregnancy
     Dosage: UNK
     Route: 064
  2. HYDROCHLOROTHIAZIDE [Suspect]
     Active Substance: HYDROCHLOROTHIAZIDE
     Indication: Maternal exposure during pregnancy
     Dosage: UNK
     Route: 064
  3. ORLISTAT [Suspect]
     Active Substance: ORLISTAT
     Indication: Maternal exposure during pregnancy
     Dosage: UNK
     Route: 064

REACTIONS (2)
  - Talipes [Unknown]
  - Foetal exposure during pregnancy [Unknown]
